FAERS Safety Report 6690337 (Version 2)
Quarter: 2024Q4

REPORT INFORMATION
  Report Type: Spontaneous
  Country: ES (occurrence: ES)
  Receive Date: 20080703
  Receipt Date: 20241203
  Transmission Date: 20250115
  Serious: Yes (Hospitalization, Other)
  Sender: SANOFI AVENTIS
  Company Number: ES-BAYER-200821091GPV

PATIENT
  Age: 13 Year
  Sex: Male

DRUGS (5)
  1. FLUDARABINE PHOSPHATE [Suspect]
     Active Substance: FLUDARABINE PHOSPHATE
     Indication: Stem cell transplant
     Dosage: 75 MG/M2, 1X
     Route: 065
  2. FLUDARABINE PHOSPHATE [Suspect]
     Active Substance: FLUDARABINE PHOSPHATE
     Indication: Sickle cell disease
  3. CYCLOPHOSPHAMIDE [Suspect]
     Active Substance: CYCLOPHOSPHAMIDE
     Indication: Stem cell transplant
     Dosage: 100 MG/M2, QD, TWO DOSES
     Route: 065
  4. CYCLOPHOSPHAMIDE [Suspect]
     Active Substance: CYCLOPHOSPHAMIDE
     Indication: Sickle cell disease
  5. AMPHOTERICIN B [Concomitant]
     Active Substance: AMPHOTERICIN B
     Indication: Antifungal prophylaxis
     Dosage: 3 MG/KG, QD, FROM DAY +64
     Route: 065

REACTIONS (24)
  - Hypertension [Recovered/Resolved]
  - Renal disorder [Recovered/Resolved]
  - Bladder disorder [Recovered/Resolved]
  - Bladder mass [Recovered/Resolved]
  - Back pain [Recovered/Resolved]
  - Dysuria [Recovered/Resolved]
  - Pyelocaliectasis [Recovered/Resolved]
  - Ureteric dilatation [Recovered/Resolved]
  - Respiratory failure [Recovered/Resolved]
  - Lung infiltration [Recovered/Resolved]
  - Aspergillus infection [Recovered/Resolved]
  - Pain [Recovered/Resolved]
  - Systemic mycosis [Recovered/Resolved]
  - Salmonellosis [Recovered/Resolved]
  - Diarrhoea [Recovered/Resolved]
  - Posterior reversible encephalopathy syndrome [Recovered/Resolved]
  - Cystitis haemorrhagic [Recovered/Resolved]
  - Haematuria [Recovered/Resolved]
  - Pyrexia [Recovered/Resolved]
  - Cytomegalovirus chorioretinitis [Recovered/Resolved]
  - Enterococcal bacteraemia [Recovered/Resolved]
  - Oral candidiasis [Recovered/Resolved]
  - Palatal disorder [Recovered/Resolved]
  - Human polyomavirus infection [Recovered/Resolved]

NARRATIVE: CASE EVENT DATE: 20060101
